FAERS Safety Report 17314388 (Version 2)
Quarter: 2020Q1

REPORT INFORMATION
  Report Type: Spontaneous
  Country: US (occurrence: US)
  Receive Date: 20200124
  Receipt Date: 20200221
  Transmission Date: 20200409
  Serious: No
  Sender: FDA-Public Use
  Company Number: US-BAYER-2020-013335

PATIENT
  Age: 80 Year
  Sex: Female

DRUGS (1)
  1. MIRALAX [Suspect]
     Active Substance: POLYETHYLENE GLYCOL 3350
     Indication: GASTROINTESTINAL DISORDER
     Dosage: 2 DF
     Route: 048
     Dates: start: 20200120, end: 202001

REACTIONS (1)
  - Tachycardia [Unknown]

NARRATIVE: CASE EVENT DATE: 20200120
